FAERS Safety Report 4688719-9 (Version None)
Quarter: 2005Q2

REPORT INFORMATION
  Report Type: 
  Country: None (occurrence: None)
  Receive Date: 20050609
  Receipt Date: 20050609
  Transmission Date: 20051028
  Serious: Yes (Hospitalization)
  Sender: FDA-Public Use
  Company Number: None

PATIENT
  Age: 70 Year
  Sex: Male
  Weight: 94 kg

DRUGS (3)
  1. BENADRYL [Suspect]
     Indication: CHEMOTHERAPY
     Dates: start: 20050101
  2. BENADRYL [Suspect]
     Indication: PREMEDICATION
     Dates: start: 20050101
  3. TYLENOL PM [Suspect]

REACTIONS (3)
  - CONFUSIONAL STATE [None]
  - MENTAL STATUS CHANGES [None]
  - NAUSEA [None]
